FAERS Safety Report 12475854 (Version 1)
Quarter: 2016Q2

REPORT INFORMATION
  Report Type: Spontaneous
  Country: FR (occurrence: FR)
  Receive Date: 20160617
  Receipt Date: 20160617
  Transmission Date: 20160815
  Serious: Yes (Other)
  Sender: FDA-Public Use
  Company Number: FR-JNJFOC-20160606695

PATIENT

DRUGS (2)
  1. INFLIXIMAB, RECOMBINANT [Suspect]
     Active Substance: INFLIXIMAB
     Indication: UVEITIS
     Route: 042
  2. ADALIMUMAB [Suspect]
     Active Substance: ADALIMUMAB
     Indication: UVEITIS
     Route: 058

REACTIONS (28)
  - Pyelonephritis [Unknown]
  - Cystitis [Unknown]
  - Systemic lupus erythematosus [Unknown]
  - Anal abscess [Unknown]
  - Herpes virus infection [Unknown]
  - Off label use [Unknown]
  - Herpes zoster [Unknown]
  - Hepatitis [Unknown]
  - Therapeutic response unexpected [Unknown]
  - Diarrhoea [Unknown]
  - Malignant melanoma [Unknown]
  - Bronchitis [Unknown]
  - Hypersensitivity [Unknown]
  - Psoriasis [Unknown]
  - Cholecystitis [Unknown]
  - Injection site reaction [Unknown]
  - Serum sickness [Unknown]
  - Pyrexia [Unknown]
  - Pneumonia [Unknown]
  - Tuberculosis [Unknown]
  - Basedow^s disease [Unknown]
  - Adverse drug reaction [Unknown]
  - Nausea [Unknown]
  - Orthostatic hypotension [Unknown]
  - Product use issue [Unknown]
  - Cervical dysplasia [Unknown]
  - Squamous cell carcinoma of skin [Unknown]
  - Headache [Unknown]
